FAERS Safety Report 11131542 (Version 2)
Quarter: 2015Q2

REPORT INFORMATION
  Report Type: Report from Study
  Country: ZA (occurrence: ZA)
  Receive Date: 20150522
  Receipt Date: 20150529
  Transmission Date: 20150821
  Serious: Yes (Death, Other)
  Sender: FDA-Public Use
  Company Number: ZA-AMGEN-ZAFSL2015049127

PATIENT
  Age: 55 Year
  Sex: Female

DRUGS (1)
  1. ARANESP [Suspect]
     Active Substance: DARBEPOETIN ALFA
     Indication: PRODUCT USED FOR UNKNOWN INDICATION
     Dosage: 40 MUG, QWK
     Route: 058
     Dates: start: 20140408

REACTIONS (4)
  - Hypertension [Unknown]
  - Pulmonary oedema [Fatal]
  - Diabetes mellitus [Unknown]
  - Renal failure [Unknown]

NARRATIVE: CASE EVENT DATE: 2014
